FAERS Safety Report 8188003-5 (Version None)
Quarter: 2012Q1

REPORT INFORMATION
  Report Type: 
  Country: None (occurrence: None)
  Receive Date: 20120306
  Receipt Date: 20120228
  Transmission Date: 20120608
  Serious: Yes (Other)
  Sender: FDA-Public Use
  Company Number: US-B.I. PHARMACEUTICALS,INC./RIDGEFIELD-2012-BP-04125BP

PATIENT
  Sex: Male

DRUGS (3)
  1. TOVIAZ [Suspect]
  2. RAPAFLO [Suspect]
  3. FLOMAX [Suspect]

REACTIONS (3)
  - DYSURIA [None]
  - INFLAMMATION [None]
  - RADIOTHERAPY [None]
